FAERS Safety Report 4386897-2 (Version None)
Quarter: 2004Q2

REPORT INFORMATION
  Report Type: 
  Country: None (occurrence: None)
  Receive Date: 20040628
  Receipt Date: 20040628
  Transmission Date: 20050107
  Serious: No
  Sender: FDA-Public Use
  Company Number: None

PATIENT
  Age: 49 Year
  Sex: Male
  Weight: 84.8 kg

DRUGS (6)
  1. PANTOPRAZOLE SODIUM [Suspect]
     Indication: MALLORY-WEISS SYNDROME
     Dosage: 40 MG IV DAILY
     Route: 048
     Dates: start: 20040531
  2. PANTOPRAZOLE SODIUM [Suspect]
     Indication: OESOPHAGITIS
     Dosage: 40 MG IV DAILY
     Route: 048
     Dates: start: 20040531
  3. GABOPENTIN [Concomitant]
  4. MAALOX [Concomitant]
  5. TIZANIDINE HCL [Concomitant]
  6. ROFECOXIB [Concomitant]

REACTIONS (3)
  - CHILLS [None]
  - ERYTHEMA [None]
  - TREMOR [None]
